FAERS Safety Report 6998534 (Version 5)
Quarter: 2014Q2

REPORT INFORMATION
  Report Type: Spontaneous
  Country: US (occurrence: US)
  Receive Date: 20060209
  Receipt Date: 20131018
  Transmission Date: 20141212
  Serious: Yes (Other)
  Sender: FDA-Public Use
  Company Number: US-PFIZER INC-2006015933

PATIENT
  Age: 55 Year
  Sex: Female
  Weight: 53 kg

DRUGS (9)
  1. PROVERA [Suspect]
     Indication: HORMONE REPLACEMENT THERAPY
     Dosage: UNK
     Route: 048
     Dates: start: 199007, end: 199201
  2. PROVERA [Suspect]
     Indication: MENOPAUSAL SYMPTOMS
  3. PREMARIN [Suspect]
     Indication: HORMONE REPLACEMENT THERAPY
     Dosage: UNK
     Route: 048
     Dates: start: 198811, end: 199201
  4. MEDROXYPROGESTERONE ACETATE [Suspect]
     Indication: HORMONE REPLACEMENT THERAPY
     Dosage: UNK
     Route: 048
  5. CYCRIN [Suspect]
     Indication: HORMONE REPLACEMENT THERAPY
     Dosage: UNK
     Route: 048
  6. MEDROXYPROGESTERONE [Suspect]
     Indication: HORMONE REPLACEMENT THERAPY
     Dosage: UNK
     Route: 048
     Dates: start: 198811, end: 199007
  7. MEDROXYPROGESTERONE [Suspect]
     Indication: MENOPAUSAL SYMPTOMS
  8. SYNTHROID [Concomitant]
     Indication: THYROID DISORDER
     Dosage: UNK
     Dates: start: 1989
  9. LEVOXYL [Concomitant]
     Indication: THYROID DISORDER
     Dosage: 0.088 MG, 1X/DAY
     Dates: start: 1989

REACTIONS (2)
  - Breast cancer female [Unknown]
  - Intraductal proliferative breast lesion [Unknown]
